FAERS Safety Report 5602027-0 (Version None)
Quarter: 2008Q1

REPORT INFORMATION
  Report Type: 
  Country: None (occurrence: None)
  Receive Date: 20080122
  Receipt Date: 20080122
  Transmission Date: 20080703
  Serious: No
  Sender: FDA-Public Use
  Company Number: None

PATIENT
  Age: 30 Year
  Sex: Female
  Weight: 58.9676 kg

DRUGS (1)
  1. WELLBUTRIN XI 150MG GLAXOSMITH [Suspect]
     Indication: SMOKING CESSATION THERAPY
     Dosage: 150MG 1 EVERY MORNING PO
     Route: 048
     Dates: start: 20080118, end: 20080121

REACTIONS (10)
  - AGITATION [None]
  - ANXIETY [None]
  - DEPRESSION [None]
  - DISTURBANCE IN ATTENTION [None]
  - HEART RATE INCREASED [None]
  - HOSTILITY [None]
  - INSOMNIA [None]
  - IRRITABILITY [None]
  - MOOD ALTERED [None]
  - PANIC ATTACK [None]
